FAERS Safety Report 11194203 (Version 1)
Quarter: 2015Q2

REPORT INFORMATION
  Report Type: Spontaneous
  Country: US (occurrence: US)
  Receive Date: 20150616
  Receipt Date: 20150616
  Transmission Date: 20150821
  Serious: No
  Sender: FDA-Public Use
  Company Number: US-LPDUSPRD-20150136

PATIENT
  Sex: Female

DRUGS (2)
  1. CYANOCOBALAMIN INJECTION, USP (0031-25) [Suspect]
     Active Substance: CYANOCOBALAMIN
     Dosage: DOSE WAS UNKNOWN
     Route: 030
     Dates: start: 2011
  2. AMBIEN [Concomitant]
     Active Substance: ZOLPIDEM TARTRATE
     Dosage: UNKNOWN
     Route: 065

REACTIONS (5)
  - Off label use [Unknown]
  - Feeling abnormal [Recovered/Resolved]
  - Visual impairment [Not Recovered/Not Resolved]
  - Drug ineffective [Unknown]
  - Aura [Recovered/Resolved]

NARRATIVE: CASE EVENT DATE: 2011
